FAERS Safety Report 8909190 (Version 2)
Quarter: 2012Q4

REPORT INFORMATION
  Report Type: Spontaneous
  Country: GB (occurrence: None)
  Receive Date: 20121107
  Receipt Date: 20121204
  Transmission Date: 20130627
  Serious: Yes (Hospitalization)
  Sender: FDA-Public Use
  Company Number: 1468993

PATIENT
  Age: 51 Year
  Sex: Female
  Weight: 36.5 kg

DRUGS (23)
  1. VINCRISTINE SULFATE [Suspect]
     Indication: NON-HODGKIN^S LYMPHOMA
     Route: 042
     Dates: start: 20111011
  2. RITUXIMAB [Suspect]
     Indication: NON-HODGKIN^S LYMPHOMA
     Route: 042
     Dates: start: 20111011
  3. PENICILLIN [Suspect]
     Indication: DRUG USE FOR UNKNOWN INDICATION
     Dates: start: 20111027, end: 20111028
  4. CYCLOPHOSPHAMIDE [Suspect]
     Indication: NON-HODGKIN^S LYMPHOMA
     Route: 042
     Dates: start: 20111011
  5. PREDNISOLONE [Suspect]
     Indication: NON-HODGKIN^S LYMPHOMA
     Route: 048
     Dates: start: 20111011, end: 20111011
  6. CHLORPHENIRAMINE /00072502/ [Concomitant]
  7. SENNA [Concomitant]
  8. SODIUM CHLORIDE [Concomitant]
  9. ONDANSETRON [Concomitant]
  10. MAGNESIUM HYDROXIDE [Concomitant]
  11. CETIRIZINE [Concomitant]
  12. SANDO K /00031402/ [Concomitant]
  13. MOVICOL /01625101/ [Concomitant]
  14. BETNOVATE [Concomitant]
  15. DIPROBASE /01132701/ [Concomitant]
  16. GRANULOCYTE COLONY STIMULATING FACTOR [Concomitant]
  17. ALLOPURINOL [Concomitant]
  18. METOCLOPRAMIDE [Concomitant]
  19. BUSCOPAN [Concomitant]
  20. CODEINE [Concomitant]
  21. HYDROCORTISONE [Concomitant]
  22. PARACETAMOL [Concomitant]
  23. OMEPRAZOLE [Concomitant]

REACTIONS (4)
  - Haematotoxicity [None]
  - Abdominal pain [None]
  - Hypersensitivity [None]
  - Febrile neutropenia [None]
